FAERS Safety Report 23721988 (Version 1)
Quarter: 2024Q2

REPORT INFORMATION
  Report Type: Spontaneous
  Country: US (occurrence: US)
  Receive Date: 20240409
  Receipt Date: 20240409
  Transmission Date: 20240716
  Serious: Yes (Other)
  Sender: FDA-Public Use
  Company Number: US-BAYER-2024A049239

PATIENT
  Age: 55 Year
  Sex: Male
  Weight: 82.1 kg

DRUGS (4)
  1. ADEMPAS [Suspect]
     Active Substance: RIOCIGUAT
     Indication: Pulmonary hypertension
     Dosage: 0.5 MG, TID
  2. WARFARIN [Concomitant]
     Active Substance: WARFARIN
     Dosage: UNK
     Route: 048
     Dates: start: 201705
  3. COUMADIN [Concomitant]
     Active Substance: WARFARIN SODIUM
  4. LEVOFLOXACIN [Concomitant]
     Active Substance: LEVOFLOXACIN

REACTIONS (2)
  - Pulmonary haemorrhage [None]
  - Haemoptysis [Recovered/Resolved]

NARRATIVE: CASE EVENT DATE: 20240227
